FAERS Safety Report 6940436-8 (Version None)
Quarter: 2010Q3

REPORT INFORMATION
  Report Type: 
  Country: None (occurrence: None)
  Receive Date: 20100820
  Receipt Date: 20100816
  Transmission Date: 20110219
  Serious: Yes (Other)
  Sender: FDA-Public Use
  Company Number: 1000015743

PATIENT
  Age: 51 Year
  Sex: Female

DRUGS (6)
  1. BYSTOLIC [Suspect]
     Indication: HYPERTENSION
     Dosage: 20 MG (20 MG, 1 IN 1 D), ORAL
     Route: 048
     Dates: start: 20090101
  2. HYDROCHLOROTHIAZIDE [Concomitant]
  3. DARVOCET [Concomitant]
  4. ZOLPIDEM [Concomitant]
  5. SPIRONOLACTONE [Concomitant]
  6. BETAMETHASONE (CREAM) [Concomitant]

REACTIONS (3)
  - ADRENAL NEOPLASM [None]
  - BLOOD PRESSURE FLUCTUATION [None]
  - FEELING HOT [None]
